FAERS Safety Report 24683341 (Version 1)
Quarter: 2024Q4

REPORT INFORMATION
  Report Type: Spontaneous
  Country: CN (occurrence: CN)
  Receive Date: 20241201
  Receipt Date: 20241201
  Transmission Date: 20250115
  Serious: Yes (Death, Hospitalization)
  Sender: BEIGENE
  Company Number: CN-BEIGENE-BGN-2024-019358

PATIENT

DRUGS (2)
  1. TISLELIZUMAB [Suspect]
     Active Substance: TISLELIZUMAB
     Indication: Squamous cell carcinoma of lung
     Dosage: 200 MILLIGRAM, Q3WK
     Route: 041
     Dates: start: 20240304
  2. OLAPARIB [Concomitant]
     Active Substance: OLAPARIB
     Indication: Squamous cell carcinoma of lung
     Dosage: 150 MILLIGRAM, ONCE EVERY 2 DAYS
     Route: 041
     Dates: start: 20240304, end: 20241021

REACTIONS (2)
  - Myocarditis [Fatal]
  - Sudden cardiac death [Fatal]

NARRATIVE: CASE EVENT DATE: 20241114
